FAERS Safety Report 8030927-3 (Version None)
Quarter: 2012Q1

REPORT INFORMATION
  Report Type: 
  Country: None (occurrence: None)
  Receive Date: 20120105
  Receipt Date: 20111222
  Transmission Date: 20120608
  Serious: Yes (Hospitalization)
  Sender: FDA-Public Use
  Company Number: 1000026621

PATIENT
  Age: 83 Year
  Sex: Female

DRUGS (3)
  1. NEBIVOLOL HCL [Suspect]
     Indication: HYPERTENSION
     Dosage: 5 MG (5 MG,1 IN 1 D),ORAL
     Route: 048
     Dates: start: 20090101, end: 20111122
  2. ASPIRIN [Concomitant]
  3. DONEPEZIL HCL [Suspect]
     Indication: COGNITIVE DISORDER
     Dosage: 10 MG (10 MG,1 IN 1 D),ORAL
     Route: 048
     Dates: start: 20090101

REACTIONS (2)
  - BRADYCARDIA [None]
  - ORTHOSTATIC HYPOTENSION [None]
